FAERS Safety Report 6128719-5 (Version None)
Quarter: 2009Q1

REPORT INFORMATION
  Report Type: 
  Country: None (occurrence: None)
  Receive Date: 20090323
  Receipt Date: 20090313
  Transmission Date: 20090719
  Serious: Yes (Death, Hospitalization, Other)
  Sender: FDA-Public Use
  Company Number: BR-PFIZER INC-2008062809

PATIENT

DRUGS (1)
  1. CELEBRA [Suspect]
     Indication: PAIN
     Dosage: UNK
     Route: 048
     Dates: end: 20080701

REACTIONS (4)
  - ANAEMIA [None]
  - ASTHENIA [None]
  - DEATH [None]
  - HAEMATEMESIS [None]
